FAERS Safety Report 25083361 (Version 1)
Quarter: 2025Q1

REPORT INFORMATION
  Report Type: Spontaneous
  Country: CN (occurrence: CN)
  Receive Date: 20250317
  Receipt Date: 20250317
  Transmission Date: 20250409
  Serious: Yes (Hospitalization)
  Sender: NOVARTIS
  Company Number: CN-002147023-NVSC2025CN040218

PATIENT
  Sex: Male
  Weight: 6.7 kg

DRUGS (1)
  1. OXCARBAZEPINE [Suspect]
     Active Substance: OXCARBAZEPINE
     Indication: Epilepsy
     Dosage: 1.7 ML, BID (Q12H)
     Route: 048
     Dates: start: 20250302, end: 20250304

REACTIONS (4)
  - Cough [Unknown]
  - Chlamydial infection [Unknown]
  - Epilepsy [Unknown]
  - Nystagmus [Recovering/Resolving]

NARRATIVE: CASE EVENT DATE: 20250304
